FAERS Safety Report 12009430 (Version 3)
Quarter: 2024Q4

REPORT INFORMATION
  Report Type: Spontaneous
  Country: DE (occurrence: DE)
  Receive Date: 20160205
  Receipt Date: 20241029
  Transmission Date: 20250115
  Serious: Yes (Other)
  Sender: ROCHE
  Company Number: DE-MLMSERVICE-20160125-0116197-1

PATIENT
  Age: 34 Year
  Sex: Male

DRUGS (11)
  1. MYCOPHENOLATE MOFETIL [Suspect]
     Active Substance: MYCOPHENOLATE MOFETIL
     Indication: Immunosuppressant drug therapy
     Dosage: 2 X 1000 MG
     Route: 065
  2. VALGANCICLOVIR [Suspect]
     Active Substance: VALGANCICLOVIR
     Indication: Product used for unknown indication
     Route: 065
  3. VALGANCICLOVIR [Suspect]
     Active Substance: VALGANCICLOVIR
     Route: 050
  4. CYCLOSPORINE [Suspect]
     Active Substance: CYCLOSPORINE
     Indication: Immunosuppressant drug therapy
     Dosage: 2X250 MG (TROUGH LEVEL 248 MCG/L)
     Route: 065
  5. CYCLOSPORINE [Suspect]
     Active Substance: CYCLOSPORINE
     Indication: Immunosuppressant drug therapy
     Dosage: 2X75 MG (TROUGH LEVEL 70 TO 90 MCG/L
     Route: 065
  6. BASILIXIMAB [Suspect]
     Active Substance: BASILIXIMAB
     Indication: Immunosuppressant drug therapy
     Route: 065
  7. PREDNISOLONE [Suspect]
     Active Substance: PREDNISOLONE
     Indication: Immunosuppressant drug therapy
     Route: 065
  8. PREDNISOLONE [Suspect]
     Active Substance: PREDNISOLONE
     Indication: Immunosuppressant drug therapy
     Route: 065
  9. STAVUDINE [Concomitant]
     Active Substance: STAVUDINE
  10. LAMIVUDINE [Concomitant]
     Active Substance: LAMIVUDINE
  11. NEVIRAPINE [Concomitant]
     Active Substance: NEVIRAPINE

REACTIONS (4)
  - Lymphopenia [Unknown]
  - Polyomavirus-associated nephropathy [Recovering/Resolving]
  - Staphylococcal infection [Unknown]
  - Norovirus infection [Unknown]
